FAERS Safety Report 7142121-9 (Version None)
Quarter: 2010Q4

REPORT INFORMATION
  Report Type: 
  Country: None (occurrence: None)
  Receive Date: 20101207
  Receipt Date: 20101202
  Transmission Date: 20110411
  Serious: Yes (Hospitalization, Other)
  Sender: FDA-Public Use
  Company Number: US-BRISTOL-MYERS SQUIBB COMPANY-15403041

PATIENT
  Age: 73 Year
  Sex: Female

DRUGS (2)
  1. ONGLYZA [Suspect]
  2. SULFONAMIDE [Suspect]

REACTIONS (2)
  - BLOOD GLUCOSE DECREASED [None]
  - BLOOD PRESSURE DECREASED [None]
